FAERS Safety Report 8612835-X (Version None)
Quarter: 2012Q3

REPORT INFORMATION
  Report Type: 
  Country: None (occurrence: None)
  Receive Date: 20120822
  Receipt Date: 20120228
  Transmission Date: 20120928
  Serious: No
  Sender: FDA-Public Use
  Company Number: US-ASTRAZENECA-2011SE10559

PATIENT
  Age: 53 Year
  Sex: Female
  Weight: 113.4 kg

DRUGS (1)
  1. SYMBICORT [Suspect]
     Indication: ASTHMA
     Dosage: 160 MCG/4.5 MCG, 10.2 GM, 2 PUFFS TWO TIMES A DAY
     Route: 055
     Dates: start: 20101001

REACTIONS (3)
  - NERVOUSNESS [None]
  - FEELING JITTERY [None]
  - INCORRECT DOSE ADMINISTERED [None]
